FAERS Safety Report 8399047-2 (Version None)
Quarter: 2012Q2

REPORT INFORMATION
  Report Type: 
  Country: None (occurrence: None)
  Receive Date: 20120323
  Receipt Date: 20110222
  Transmission Date: 20120825
  Serious: Yes (Hospitalization)
  Sender: FDA-Public Use
  Company Number: 163-21880-11010667

PATIENT
  Age: 71 Year
  Sex: Male

DRUGS (6)
  1. ADVAIR (SERETIDE MITE) (INHALANT) [Concomitant]
  2. REVLIMID [Suspect]
     Indication: MULTIPLE MYELOMA
     Dosage: 10 MG, 1 IN 1 D, PO, 10 MG, 1 IN 1 D, PO
     Route: 048
     Dates: start: 20100930
  3. REVLIMID [Suspect]
     Indication: MULTIPLE MYELOMA
     Dosage: 10 MG, 1 IN 1 D, PO, 10 MG, 1 IN 1 D, PO
     Route: 048
     Dates: start: 20090504, end: 20091216
  4. ACYCLOVIR [Concomitant]
  5. LEVAQUIN [Concomitant]
  6. MAXZIDE [Concomitant]

REACTIONS (2)
  - RASH [None]
  - PNEUMONIA [None]
